FAERS Safety Report 22120146 (Version 1)
Quarter: 2023Q1

REPORT INFORMATION
  Report Type: Spontaneous
  Country: US (occurrence: None)
  Receive Date: 20230321
  Receipt Date: 20230321
  Transmission Date: 20230418
  Serious: No
  Sender: FDA-Public Use
  Company Number: US-ROCHE-3241690

PATIENT
  Sex: Female

DRUGS (1)
  1. ERIVEDGE [Suspect]
     Active Substance: VISMODEGIB
     Indication: Basal cell carcinoma
     Dosage: 1 CAPSULE IN MORNING WITH OR WITHOUT FOOD, SWALLOW WHOLE DO NOT OPEN OR CRUSH
     Route: 048
     Dates: start: 202211

REACTIONS (6)
  - Glossitis [Not Recovered/Not Resolved]
  - Constipation [Not Recovered/Not Resolved]
  - Abdominal discomfort [Not Recovered/Not Resolved]
  - Headache [Not Recovered/Not Resolved]
  - Emotional poverty [Not Recovered/Not Resolved]
  - Dysgeusia [Not Recovered/Not Resolved]
